FAERS Safety Report 5103249-8 (Version None)
Quarter: 2006Q3

REPORT INFORMATION
  Report Type: 
  Country: None (occurrence: None)
  Receive Date: 20060913
  Receipt Date: 20060905
  Transmission Date: 20061208
  Serious: Yes (Other)
  Sender: FDA-Public Use
  Company Number: PHBS2006JP13610

PATIENT
  Sex: Female

DRUGS (5)
  1. TEGRETOL [Suspect]
     Indication: BIPOLAR I DISORDER
     Dosage: 600 MG/DAY
     Route: 048
  2. TEGRETOL [Suspect]
     Dosage: 100 MG/DAY
     Route: 048
  3. TEGRETOL [Suspect]
     Dosage: 1100 MG/DAY
     Route: 048
  4. TEGRETOL [Suspect]
     Dosage: 600 MG/DAY
     Route: 048
  5. HIRNAMIN [Concomitant]

REACTIONS (2)
  - HALLUCINATION, AUDITORY [None]
  - SUICIDE ATTEMPT [None]
